FAERS Safety Report 14556858 (Version 4)
Quarter: 2018Q2

REPORT INFORMATION
  Report Type: Spontaneous
  Country: JP (occurrence: JP)
  Receive Date: 20180221
  Receipt Date: 20180605
  Transmission Date: 20180711
  Serious: Yes (Death, Other)
  Sender: FDA-Public Use
  Company Number: JP-CELGENEUS-JPN-20180110358

PATIENT
  Age: 90 Year
  Sex: Male

DRUGS (3)
  1. EXJADE [Concomitant]
     Active Substance: DEFERASIROX
     Indication: PRODUCT USED FOR UNKNOWN INDICATION
     Dosage: UNKNOWN
     Route: 065
  2. REVLIMID [Suspect]
     Active Substance: LENALIDOMIDE
     Dosage: 10 MILLIGRAM
     Route: 048
     Dates: start: 20131025, end: 20150610
  3. REVLIMID [Suspect]
     Active Substance: LENALIDOMIDE
     Indication: 5Q MINUS SYNDROME
     Dosage: 10 MILLIGRAM
     Route: 048
     Dates: start: 20130416, end: 2013

REACTIONS (6)
  - Lung neoplasm malignant [Not Recovered/Not Resolved]
  - Cellulitis [Fatal]
  - 5q minus syndrome [Fatal]
  - Multiple organ dysfunction syndrome [Fatal]
  - Pneumonia staphylococcal [Fatal]
  - Rash [Unknown]

NARRATIVE: CASE EVENT DATE: 2013
